FAERS Safety Report 6894812-2 (Version None)
Quarter: 2010Q3

REPORT INFORMATION
  Report Type: 
  Country: None (occurrence: None)
  Receive Date: 20100728
  Receipt Date: 20100715
  Transmission Date: 20110219
  Serious: Yes (Other)
  Sender: FDA-Public Use
  Company Number: SP-S-20100048

PATIENT
  Sex: Female

DRUGS (1)
  1. ESTROGEL [Suspect]
     Indication: HORMONE REPLACEMENT THERAPY
     Dosage: TRANSCUTANEOUS

REACTIONS (1)
  - MALIGNANT MELANOMA [None]
